FAERS Safety Report 12336298 (Version 1)
Quarter: 2016Q2

REPORT INFORMATION
  Report Type: Spontaneous
  Country: US (occurrence: None)
  Receive Date: 20160504
  Receipt Date: 20160504
  Transmission Date: 20160815
  Serious: No
  Sender: FDA-Public Use
  Company Number: None

PATIENT
  Age: 51 Year
  Sex: Male

DRUGS (2)
  1. ZELBORAF [Concomitant]
     Active Substance: VEMURAFENIB
  2. COTELLIC [Suspect]
     Active Substance: COBIMETINIB
     Indication: RETROPERITONEAL NEOPLASM METASTATIC
     Dosage: 60 MG QD1-21 THEN 7 OFF PO
     Route: 048
     Dates: start: 20160420

REACTIONS (2)
  - Burns second degree [None]
  - Sunburn [None]

NARRATIVE: CASE EVENT DATE: 201605
